FAERS Safety Report 8216799-2 (Version None)
Quarter: 2012Q1

REPORT INFORMATION
  Report Type: 
  Country: None (occurrence: None)
  Receive Date: 20120316
  Receipt Date: 20120308
  Transmission Date: 20120608
  Serious: Yes (Hospitalization, Disabling, Other)
  Sender: FDA-Public Use
  Company Number: US-MERCK-1107USA03607

PATIENT
  Age: 51 Year
  Sex: Female
  Weight: 59 kg

DRUGS (16)
  1. FOSAMAX [Suspect]
     Route: 048
     Dates: start: 19960101, end: 20050101
  2. FOSAMAX [Suspect]
     Route: 048
     Dates: start: 19960101, end: 20050101
  3. FOSAMAX [Suspect]
     Indication: OSTEOPENIA
     Route: 048
     Dates: start: 20060101
  4. FOSAMAX [Suspect]
     Indication: OSTEOPOROSIS
     Route: 048
     Dates: start: 20060101
  5. PREDNISONE [Concomitant]
     Indication: SJOGREN'S SYNDROME
     Route: 065
     Dates: start: 19850101
  6. FOSAMAX [Suspect]
     Route: 048
     Dates: start: 19951201, end: 19980501
  7. PLAQUENIL [Concomitant]
     Indication: SJOGREN'S SYNDROME
     Route: 065
     Dates: start: 19850101
  8. DIDRONEL [Concomitant]
     Route: 065
     Dates: start: 19930101, end: 19951201
  9. FOSAMAX [Suspect]
     Route: 048
     Dates: start: 19951201, end: 19980501
  10. CALCIUM (UNSPECIFIED) [Concomitant]
     Route: 065
     Dates: start: 19840101
  11. PREMARIN [Concomitant]
     Route: 065
     Dates: start: 19740101
  12. PREDNISONE [Concomitant]
     Indication: SYSTEMIC LUPUS ERYTHEMATOSUS
     Route: 065
     Dates: start: 19850101
  13. FOSAMAX PLUS D [Suspect]
     Route: 048
     Dates: start: 19960101, end: 20050101
  14. FOSAMAX PLUS D [Suspect]
     Indication: OSTEOPOROSIS
     Route: 048
     Dates: start: 20070716, end: 20100701
  15. [THERAPY UNSPECIFIED] [Concomitant]
     Indication: RHEUMATOID ARTHRITIS
     Route: 065
  16. PLAQUENIL [Concomitant]
     Indication: SYSTEMIC LUPUS ERYTHEMATOSUS
     Route: 065
     Dates: start: 19850101

REACTIONS (30)
  - FEMUR FRACTURE [None]
  - CARDIAC DISORDER [None]
  - CEREBROVASCULAR ACCIDENT [None]
  - RIB FRACTURE [None]
  - TRANSIENT ISCHAEMIC ATTACK [None]
  - EMPHYSEMA [None]
  - CAROTID ARTERY DISEASE [None]
  - FALL [None]
  - APPENDIX DISORDER [None]
  - DEPRESSION POSTOPERATIVE [None]
  - ANGINA PECTORIS [None]
  - LIGAMENT SPRAIN [None]
  - ASTHMA [None]
  - IMPAIRED HEALING [None]
  - AORTIC ANEURYSM [None]
  - CORONARY ARTERY DISEASE [None]
  - ANXIETY [None]
  - UTERINE DISORDER [None]
  - SPINAL FRACTURE [None]
  - NERVOUSNESS [None]
  - BLOOD CHOLESTEROL INCREASED [None]
  - DYSPNOEA [None]
  - BACK PAIN [None]
  - GALLBLADDER DISORDER [None]
  - DIABETES MELLITUS [None]
  - MENTAL DISORDER [None]
  - HYPERTENSION [None]
  - PNEUMONIA [None]
  - GASTROOESOPHAGEAL REFLUX DISEASE [None]
  - OSTEOARTHRITIS [None]
